FAERS Safety Report 25545950 (Version 1)
Quarter: 2025Q3

REPORT INFORMATION
  Report Type: Spontaneous
  Country: US (occurrence: US)
  Receive Date: 20250712
  Receipt Date: 20250712
  Transmission Date: 20251020
  Serious: Yes (Life-Threatening, Other)
  Sender: UNITED THERAPEUTICS
  Company Number: US-UNITED THERAPEUTICS-UNT-2025-023071

PATIENT
  Age: 14 Year
  Sex: Male

DRUGS (14)
  1. UNITUXIN [Suspect]
     Active Substance: DINUTUXIMAB
     Indication: Neuroblastoma
     Route: 041
  2. NAXITAMAB [Suspect]
     Active Substance: NAXITAMAB
     Indication: Neuroblastoma
     Dosage: 2.25 MG/KG, QD [ON DAYS 2,4, 9, AND 11] (1-2 CYCLES)
     Route: 041
  3. NAXITAMAB [Suspect]
     Active Substance: NAXITAMAB
     Dosage: 2.25 MG/KG, QD [ON DAYS 2,4, 9, AND 11] (1-7 CYCLES) [RESTARTED]
     Route: 041
  4. NAXITAMAB [Suspect]
     Active Substance: NAXITAMAB
     Dosage: 2.25 MG/KG, QD [ON DAYS 2,4, 9, AND 11]
     Route: 041
  5. LORLATINIB [Suspect]
     Active Substance: LORLATINIB
     Indication: Neuroblastoma
     Dosage: 75 MG/M2, QD
  6. LORLATINIB [Suspect]
     Active Substance: LORLATINIB
  7. LORLATINIB [Suspect]
     Active Substance: LORLATINIB
  8. LORLATINIB [Suspect]
     Active Substance: LORLATINIB
  9. IRINOTECAN HYDROCHLORIDE [Suspect]
     Active Substance: IRINOTECAN HYDROCHLORIDE
     Indication: Neuroblastoma
     Dosage: 50 MG/M2, QD [1-2 CYCLE] (DAYS 1-5)
     Route: 041
  10. IRINOTECAN HYDROCHLORIDE [Suspect]
     Active Substance: IRINOTECAN HYDROCHLORIDE
     Dosage: 50 MG/M2, QD [1-7 CYCLE] (DAYS 1-5) [RESTARTED
     Route: 041
  11. TEMOZOLOMIDE [Suspect]
     Active Substance: TEMOZOLOMIDE
     Indication: Neuroblastoma
     Dosage: 150 MG/M2, QD [1-2 CYCLE] (DAYS 1-5)
  12. TEMOZOLOMIDE [Suspect]
     Active Substance: TEMOZOLOMIDE
     Dosage: 150 MG/M2, QD [1-7 CYCLE] (DAYS 1-5) [RESTARTED]
  13. GRANULOCYTE-MACROPHAGE COLONY-STIMULATING FACTOR [Suspect]
     Active Substance: GRANULOCYTE-MACROPHAGE COLONY-STIMULATING FACTOR
     Indication: Neuroblastoma
  14. GRANULOCYTE-MACROPHAGE COLONY-STIMULATING FACTOR [Suspect]
     Active Substance: GRANULOCYTE-MACROPHAGE COLONY-STIMULATING FACTOR

REACTIONS (6)
  - Respiratory failure [Recovered/Resolved]
  - Neuroblastoma [Unknown]
  - Mental status changes [Recovered/Resolved]
  - Pneumonitis [Recovered/Resolved]
  - Rhinovirus infection [Recovered/Resolved]
  - Off label use [Unknown]
